FAERS Safety Report 6148334-7 (Version None)
Quarter: 2009Q2

REPORT INFORMATION
  Report Type: 
  Country: None (occurrence: None)
  Receive Date: 20090408
  Receipt Date: 20090330
  Transmission Date: 20091009
  Serious: Yes (Death, Hospitalization)
  Sender: FDA-Public Use
  Company Number: JP-B.I. PHARMACEUTICALS,INC./RIDGEFIELD-2009-BP-03845NB

PATIENT
  Sex: Male
  Weight: 39 kg

DRUGS (5)
  1. MICARDIS [Suspect]
     Indication: HYPERTENSION
     Dosage: 40MG
     Route: 048
     Dates: start: 20070331, end: 20080504
  2. DIART [Concomitant]
     Indication: CARDIAC FAILURE
     Dosage: 30MG
     Route: 048
     Dates: end: 20080504
  3. ZYLORIC [Concomitant]
     Dosage: 200MG
     Route: 048
     Dates: end: 20080504
  4. ASPIRIN [Concomitant]
     Dosage: 100MG
     Route: 048
     Dates: end: 20080504
  5. PANALDINE [Concomitant]
     Dosage: 200MG
     Route: 048
     Dates: end: 20080504

REACTIONS (2)
  - CEREBRAL INFARCTION [None]
  - HAEMATEMESIS [None]
